FAERS Safety Report 12639718 (Version 2)
Quarter: 2017Q2

REPORT INFORMATION
  Report Type: Spontaneous
  Country: FR (occurrence: FR)
  Receive Date: 20160810
  Receipt Date: 20170509
  Transmission Date: 20170830
  Serious: Yes (Hospitalization)
  Sender: FDA-Public Use
  Company Number: FR-AUROBINDO-AUR-APL-2016-10002

PATIENT
  Age: 82 Year
  Sex: Female

DRUGS (22)
  1. LEVOFLOXACIN ACTAVIS [Suspect]
     Active Substance: LEVOFLOXACIN
     Indication: ANTIBIOTIC PROPHYLAXIS
     Dosage: UNK
     Route: 042
     Dates: start: 20151229, end: 20160106
  2. OXYNORMORO [Concomitant]
     Active Substance: OXYCODONE
     Indication: PAIN
     Dosage: ONE TABLET IF PAIN, MAXIMUM 6 DAILY
     Route: 065
  3. PIPERACILLINE / TAZOBACTAM MYLAN [Suspect]
     Active Substance: PIPERACILLIN SODIUM\TAZOBACTAM SODIUM
     Indication: ANTIBIOTIC THERAPY
     Dosage: 4 G, 3 TIMES A DAY
     Route: 042
     Dates: start: 20151209, end: 20151221
  4. TAHOR [Concomitant]
     Active Substance: ATORVASTATIN CALCIUM
     Indication: PRODUCT USED FOR UNKNOWN INDICATION
     Dosage: ONE TABLET IN THE EVENING
     Route: 065
  5. PANTOPRAZOLE [Concomitant]
     Active Substance: PANTOPRAZOLE
     Indication: PRODUCT USED FOR UNKNOWN INDICATION
     Dosage: ONE TABLET IN THE EVENING
     Route: 065
  6. LOVENOX [Suspect]
     Active Substance: ENOXAPARIN SODIUM
     Indication: THROMBOSIS PROPHYLAXIS
     Dosage: 4000 UI DAILY
     Route: 058
     Dates: start: 20151210, end: 20151224
  7. TENORMIN [Concomitant]
     Active Substance: ATENOLOL
     Indication: PRODUCT USED FOR UNKNOWN INDICATION
     Dosage: ONE TABLET IN THE MORNING
     Route: 065
  8. KARDEGIC [Concomitant]
     Active Substance: ASPIRIN LYSINE
     Indication: PRODUCT USED FOR UNKNOWN INDICATION
     Dosage: ONE TABLET IN THE MORNING
     Route: 065
  9. DOLIPRANE [Concomitant]
     Active Substance: ACETAMINOPHEN
     Indication: PAIN
     Dosage: 2 CAPSULES IF PAINS, MAXIMUM 4 DAILY
     Route: 065
  10. ZOPHREN                            /00955301/ [Concomitant]
     Active Substance: ONDANSETRON
     Indication: PRODUCT USED FOR UNKNOWN INDICATION
     Dosage: TABLET IF NEEDED, MAXIMUM THRICE DAILY
     Route: 065
  11. SPIRONOLACTONE. [Concomitant]
     Active Substance: SPIRONOLACTONE
     Indication: PRODUCT USED FOR UNKNOWN INDICATION
     Dosage: ONE TABLET IN THE MORNING
     Route: 065
  12. CEFTRIAXONE PANPHARMA [Suspect]
     Active Substance: CEFTRIAXONE
     Dosage: 2 G, DAILY
     Route: 042
     Dates: start: 20160106, end: 20160107
  13. VANCOMYCINE MYLAN                  /00314401/ [Suspect]
     Active Substance: VANCOMYCIN
     Dosage: 750 MG, TWO TIMES A DAY
     Route: 042
     Dates: start: 20151222, end: 20151228
  14. FOSINOPRIL [Concomitant]
     Active Substance: FOSINOPRIL
     Indication: PRODUCT USED FOR UNKNOWN INDICATION
     Dosage: ONE TABLET IN THE MORNING
     Route: 065
  15. CEFTRIAXONE PANPHARMA [Suspect]
     Active Substance: CEFTRIAXONE
     Indication: ANTIBIOTIC THERAPY
     Dosage: 2 G, DAILY
     Route: 042
     Dates: start: 20151222, end: 20151229
  16. VANCOMYCINE MYLAN                  /00314401/ [Suspect]
     Active Substance: VANCOMYCIN
     Indication: ANTIBIOTIC THERAPY
     Dosage: 1 G, TWO TIMES A DAY
     Route: 042
     Dates: start: 20151209, end: 20151221
  17. GENTAMICINE PANPHARMA [Suspect]
     Active Substance: GENTAMICIN
     Indication: ANTIBIOTIC THERAPY
     Dosage: 300 MG, DAILY
     Route: 042
     Dates: start: 20151209, end: 20151211
  18. LOVENOX [Suspect]
     Active Substance: ENOXAPARIN SODIUM
     Dosage: 6000 UI DAILY
     Route: 058
     Dates: start: 20151224, end: 20151228
  19. VANCOMYCINE MYLAN                  /00314401/ [Suspect]
     Active Substance: VANCOMYCIN
     Dosage: 650 MG, TWO TIMES A DAY
     Route: 042
     Dates: start: 20151228, end: 20151229
  20. VANCOMYCINE MYLAN                  /00314401/ [Suspect]
     Active Substance: VANCOMYCIN
     Dosage: 750 MG, TWO TIMES A DAY
     Route: 042
     Dates: start: 20151229, end: 20160106
  21. SMECTA [Concomitant]
     Active Substance: MONTMORILLONITE
     Indication: PRODUCT USED FOR UNKNOWN INDICATION
     Dosage: ONE SACHET IF NEEDED, MAXIMUM 4 TIMES DAILY
     Route: 065
  22. CETIRIZINE [Concomitant]
     Active Substance: CETIRIZINE HYDROCHLORIDE
     Indication: PRODUCT USED FOR UNKNOWN INDICATION
     Dosage: ONE TABLET IN THE EVENING
     Route: 065

REACTIONS (1)
  - Drug reaction with eosinophilia and systemic symptoms [Not Recovered/Not Resolved]

NARRATIVE: CASE EVENT DATE: 20151226
